FAERS Safety Report 20719586 (Version 1)
Quarter: 2022Q2

REPORT INFORMATION
  Report Type: Spontaneous
  Country: US (occurrence: None)
  Receive Date: 20220417
  Receipt Date: 20220417
  Transmission Date: 20220721
  Serious: Yes (Life-Threatening)
  Sender: FDA-Public Use
  Company Number: None

PATIENT
  Age: 58 Year
  Sex: Male
  Weight: 109 kg

DRUGS (2)
  1. CISATRACURIUM [Suspect]
     Active Substance: CISATRACURIUM
  2. DEVICE [Concomitant]
     Active Substance: DEVICE

REACTIONS (4)
  - Device infusion issue [None]
  - Infusion related reaction [None]
  - Device programming error [None]
  - Device delivery system issue [None]

NARRATIVE: CASE EVENT DATE: 20211030
